FAERS Safety Report 9307229 (Version 1)
Quarter: 2013Q2

REPORT INFORMATION
  Report Type: Spontaneous
  Country: US (occurrence: US)
  Receive Date: 20130524
  Receipt Date: 20130524
  Transmission Date: 20140414
  Serious: Yes (Hospitalization)
  Sender: FDA-Public Use
  Company Number: US-BIOGENIDEC-2007BI011952

PATIENT
  Age: 38 Year
  Sex: Female

DRUGS (5)
  1. AVONEX [Suspect]
     Indication: MULTIPLE SCLEROSIS
     Route: 030
     Dates: start: 20060630, end: 2013
  2. AVONEX [Suspect]
     Indication: MULTIPLE SCLEROSIS
     Route: 030
     Dates: start: 2013
  3. INHALER (NOS) [Concomitant]
     Indication: ASTHMA
  4. IBUPROFEN [Concomitant]
     Indication: BACK PAIN
  5. TYLENOL [Concomitant]
     Indication: BACK PAIN

REACTIONS (5)
  - Grand mal convulsion [Recovered/Resolved]
  - Central nervous system lesion [Unknown]
  - Nerve injury [Not Recovered/Not Resolved]
  - Nervous system disorder [Unknown]
  - Muscular weakness [Not Recovered/Not Resolved]
